FAERS Safety Report 23043516 (Version 2)
Quarter: 2023Q4

REPORT INFORMATION
  Report Type: Report from Study
  Country: US (occurrence: None)
  Receive Date: 20231009
  Receipt Date: 20231013
  Transmission Date: 20240110
  Serious: Yes (Hospitalization)
  Sender: FDA-Public Use
  Company Number: US-ROCHE-3434953

PATIENT
  Age: 80 Year
  Sex: Male

DRUGS (27)
  1. ATEZOLIZUMAB [Suspect]
     Active Substance: ATEZOLIZUMAB
     Indication: Hormone-refractory prostate cancer
     Route: 041
     Dates: start: 20230505
  2. ATEZOLIZUMAB [Suspect]
     Active Substance: ATEZOLIZUMAB
     Route: 041
     Dates: start: 20230525
  3. ATEZOLIZUMAB [Suspect]
     Active Substance: ATEZOLIZUMAB
     Route: 041
     Dates: start: 20230615
  4. ATEZOLIZUMAB [Suspect]
     Active Substance: ATEZOLIZUMAB
     Route: 041
     Dates: start: 20230707
  5. ATEZOLIZUMAB [Suspect]
     Active Substance: ATEZOLIZUMAB
     Route: 041
     Dates: start: 20230726
  6. ATEZOLIZUMAB [Suspect]
     Active Substance: ATEZOLIZUMAB
     Dosage: ON 18/AUG/2023, THE PATIENT RECEIVED THE MOST RECENT DOSE OF ATEZOLIZUMAB PRIOR TO THE ONSET OF THE
     Route: 041
     Dates: start: 20230818
  7. CABOZANTINIB [Suspect]
     Active Substance: CABOZANTINIB
     Indication: Hormone-refractory prostate cancer
     Route: 048
     Dates: start: 20230505, end: 20230509
  8. CABOZANTINIB [Suspect]
     Active Substance: CABOZANTINIB
     Route: 048
     Dates: start: 20230519, end: 20230524
  9. CABOZANTINIB [Suspect]
     Active Substance: CABOZANTINIB
     Dosage: ON 18/AUG/2023, THE PATIENT RECEIVED THE MOST RECENT DOSE OF XL184 PRIOR TO THE ONSET OF THE ATRIAL
     Route: 048
     Dates: start: 20230526, end: 20230906
  10. ACETAMINOPHEN [Concomitant]
     Active Substance: ACETAMINOPHEN
     Dates: start: 20230207
  11. ARICEPT [Concomitant]
     Active Substance: DONEPEZIL HYDROCHLORIDE
     Dates: start: 20220615
  12. ATORVASTATIN [Concomitant]
     Active Substance: ATORVASTATIN
     Dates: start: 20170503
  13. BISOPROLOL [Concomitant]
     Active Substance: BISOPROLOL\BISOPROLOL FUMARATE
     Dates: start: 20190515
  14. DICLOFENAC [Concomitant]
     Active Substance: DICLOFENAC
     Dates: start: 20210907
  15. DOCUSATE SODIUM [Concomitant]
     Active Substance: DOCUSATE SODIUM
     Dates: start: 20181130
  16. DONEPEZIL [Concomitant]
     Active Substance: DONEPEZIL
     Dates: start: 20220615
  17. FIRMAGON [Concomitant]
     Active Substance: DEGARELIX ACETATE
     Dates: start: 20210323
  18. FLOMAX [Concomitant]
     Active Substance: TAMSULOSIN HYDROCHLORIDE
     Dates: start: 20221206
  19. IMDUR [Concomitant]
     Active Substance: ISOSORBIDE MONONITRATE
     Dates: start: 20190515
  20. LEUPROLIDE ACETATE [Concomitant]
     Active Substance: LEUPROLIDE ACETATE
     Dates: start: 20130314
  21. LIPITOR [Concomitant]
     Active Substance: ATORVASTATIN CALCIUM
     Dates: start: 20170503
  22. LYRICA [Concomitant]
     Active Substance: PREGABALIN
     Dates: start: 20220615
  23. METFORMIN [Concomitant]
     Active Substance: METFORMIN HYDROCHLORIDE
     Dates: start: 20071227
  24. NAMENDA [Concomitant]
     Active Substance: MEMANTINE HYDROCHLORIDE
     Dates: start: 20220901
  25. SANCTURA [Concomitant]
     Active Substance: TROSPIUM CHLORIDE
     Dates: start: 20230328
  26. DOCUSATE SODIUM\SENNOSIDES A AND B [Concomitant]
     Active Substance: DOCUSATE SODIUM\SENNOSIDES A AND B
     Dates: start: 20230109
  27. ZEBETA [Concomitant]
     Active Substance: BISOPROLOL FUMARATE
     Dates: start: 20200511

REACTIONS (1)
  - Atrial fibrillation [Not Recovered/Not Resolved]

NARRATIVE: CASE EVENT DATE: 20230927
